FAERS Safety Report 6542789-1 (Version None)
Quarter: 2010Q1

REPORT INFORMATION
  Report Type: 
  Country: None (occurrence: None)
  Receive Date: 20100114
  Receipt Date: 20100105
  Transmission Date: 20100710
  Serious: Yes (Hospitalization)
  Sender: FDA-Public Use
  Company Number: 2009SP003346

PATIENT
  Age: 28 Year
  Sex: Female
  Weight: 89.8122 kg

DRUGS (7)
  1. CICLESONIDE HFA [Suspect]
     Indication: RHINITIS PERENNIAL
  2. PROVENTIL [Concomitant]
  3. NUVARING [Concomitant]
  4. CELEXA [Concomitant]
  5. IRON SUPPLEMENT [Concomitant]
  6. IBUPROFEN [Concomitant]
  7. ABILIFY [Concomitant]

REACTIONS (13)
  - ANXIETY [None]
  - ASTHENIA [None]
  - BIPOLAR DISORDER [None]
  - DECREASED APPETITE [None]
  - DECREASED INTEREST [None]
  - DISTURBANCE IN ATTENTION [None]
  - IMPULSE-CONTROL DISORDER [None]
  - INSOMNIA [None]
  - JUDGEMENT IMPAIRED [None]
  - MAJOR DEPRESSION [None]
  - MANIA [None]
  - SUICIDAL IDEATION [None]
  - WEIGHT DECREASED [None]
